FAERS Safety Report 19713517 (Version 1)
Quarter: 2021Q3

REPORT INFORMATION
  Report Type: Spontaneous
  Country: US (occurrence: US)
  Receive Date: 20210817
  Receipt Date: 20210817
  Transmission Date: 20211014
  Serious: No
  Sender: FDA-Public Use
  Company Number: None

PATIENT
  Age: 74 Year
  Sex: Male

DRUGS (1)
  1. NITROFURANTOIN (NITOFURANTOIN 100MG CAP) [Suspect]
     Active Substance: NITROFURANTOIN
     Indication: PROSTATITIS
     Route: 048
     Dates: start: 20190710, end: 20200803

REACTIONS (3)
  - Cough [None]
  - Hypersensitivity pneumonitis [None]
  - Wheezing [None]

NARRATIVE: CASE EVENT DATE: 20210204
